FAERS Safety Report 5642847-X (Version None)
Quarter: 2008Q1

REPORT INFORMATION
  Report Type: 
  Country: None (occurrence: None)
  Receive Date: 20080228
  Receipt Date: 20080225
  Transmission Date: 20080703
  Serious: Yes (Hospitalization, Other)
  Sender: FDA-Public Use
  Company Number: PHHY2008JP02024

PATIENT
  Age: 58 Year
  Sex: Female

DRUGS (3)
  1. SERTRALINE HYDROCHLORIDE [Concomitant]
  2. PRIMPERAN INJ [Concomitant]
  3. TEGRETOL [Suspect]
     Indication: HEADACHE
     Dosage: UNK, UNK
     Route: 048
     Dates: start: 20071101

REACTIONS (13)
  - ABDOMINAL DISCOMFORT [None]
  - ALANINE AMINOTRANSFERASE INCREASED [None]
  - ASPARTATE AMINOTRANSFERASE INCREASED [None]
  - BLOOD ALKALINE PHOSPHATASE INCREASED [None]
  - BLOOD LACTATE DEHYDROGENASE INCREASED [None]
  - EOSINOPHIL COUNT INCREASED [None]
  - EPIGASTRIC DISCOMFORT [None]
  - GAMMA-GLUTAMYLTRANSFERASE INCREASED [None]
  - HEPATITIS [None]
  - LIVER DISORDER [None]
  - MALAISE [None]
  - NEUTROPHIL COUNT DECREASED [None]
  - PETECHIAE [None]
